FAERS Safety Report 10907357 (Version 1)
Quarter: 2015Q1

REPORT INFORMATION
  Report Type: Spontaneous
  Country: ES (occurrence: ES)
  Receive Date: 20150312
  Receipt Date: 20150312
  Transmission Date: 20150721
  Serious: Yes (Other)
  Sender: FDA-Public Use
  Company Number: ES-PFIZER INC-2015085552

PATIENT
  Age: 72 Year
  Sex: Male
  Weight: 61 kg

DRUGS (6)
  1. ELONTRIL [Interacting]
     Active Substance: BUPROPION HYDROCHLORIDE
     Indication: OBSESSIVE-COMPULSIVE DISORDER
     Dosage: 150 MG, ONCE DAILY (AT BREAKFAST)
     Route: 048
     Dates: start: 20141117
  2. TARDYFERON [Concomitant]
     Active Substance: FERROUS SULFATE\FOLIC ACID
     Dosage: 80 MG, 1X/DAY (AT BREAKFAST)
     Route: 048
     Dates: start: 20120710
  3. ZOLPIDEM APOTEX [Concomitant]
     Indication: INSOMNIA
     Dosage: 10 MG, 1X/DAY (AT NIGHT)
     Route: 048
     Dates: start: 20140101
  4. IRBESARTAN. [Concomitant]
     Active Substance: IRBESARTAN
     Indication: HYPERTENSION
     Dosage: 150 MG, ONCE DAILY (AT BREAKFAST)
     Route: 048
     Dates: start: 20141121
  5. DISTRANEURINE [Concomitant]
     Active Substance: CLOMETHIAZOLE
     Indication: AGITATION
     Dosage: 192 MG, 1X/DAY (2 TABLETS AT NIGHT)
     Route: 048
     Dates: start: 20150209
  6. BESITRAN [Suspect]
     Active Substance: SERTRALINE HYDROCHLORIDE
     Indication: OBSESSIVE-COMPULSIVE DISORDER
     Dosage: 50 MG, 1X/DAY (AT DINNER)
     Route: 048
     Dates: start: 20141117

REACTIONS (2)
  - Serotonin syndrome [Recovered/Resolved]
  - Drug interaction [Recovered/Resolved]

NARRATIVE: CASE EVENT DATE: 20150218
